FAERS Safety Report 7888023-1 (Version None)
Quarter: 2011Q4

REPORT INFORMATION
  Report Type: 
  Country: None (occurrence: None)
  Receive Date: 20111103
  Receipt Date: 20111020
  Transmission Date: 20120403
  Serious: Yes (Hospitalization, Other)
  Sender: FDA-Public Use
  Company Number: US-ELI_LILLY_AND_COMPANY-US201105006677

PATIENT
  Sex: Female

DRUGS (3)
  1. FORTEO [Suspect]
  2. FORTEO [Suspect]
     Dosage: UNK, UNKNOWN
     Route: 065
  3. FORTEO [Suspect]
     Indication: OSTEOPOROSIS
     Dosage: UNK
     Route: 065
     Dates: end: 20110701

REACTIONS (5)
  - NEPHROLITHIASIS [None]
  - INJECTION SITE PAIN [None]
  - MALAISE [None]
  - VISUAL IMPAIRMENT [None]
  - DRY THROAT [None]
